FAERS Safety Report 21697221 (Version 1)
Quarter: 2022Q4

REPORT INFORMATION
  Report Type: Report from Study
  Country: US (occurrence: US)
  Receive Date: 20221208
  Receipt Date: 20221208
  Transmission Date: 20230113
  Serious: Yes (Hospitalization, Other)
  Sender: FDA-Public Use
  Company Number: US-BRISTOL-MYERS SQUIBB COMPANY-2022-147341

PATIENT
  Age: 75 Year
  Sex: Female

DRUGS (4)
  1. AZACITIDINE [Suspect]
     Active Substance: AZACITIDINE
     Indication: Myelodysplastic syndrome
     Dosage: CYCLE-1, 75MG/M2 X 1.98M2 DAILY FOR 7 DAYS IN A 28-DAY CYCLE
     Route: 042
     Dates: start: 20221003
  2. AZACITIDINE [Suspect]
     Active Substance: AZACITIDINE
     Dosage: CYCLE-1, 75MG/M2 X 1.98M2 DAILY FOR 7 DAYS IN A 28-DAY CYCLE,
     Route: 042
     Dates: start: 20221031
  3. EVORPACEPT [Suspect]
     Active Substance: EVORPACEPT
     Indication: Myelodysplastic syndrome
     Dosage: CYCLE-1, 40 MG/KG X 85.6KG, Q4WEEKS
     Route: 065
     Dates: start: 20221003
  4. EVORPACEPT [Suspect]
     Active Substance: EVORPACEPT
     Dosage: CYCLE-2, 40 MG/KG X 85.6KG, Q4WEEKS
     Route: 065
     Dates: start: 20221031

REACTIONS (1)
  - Embolism [Recovered/Resolved]

NARRATIVE: CASE EVENT DATE: 20221119
